FAERS Safety Report 8017410-6 (Version None)
Quarter: 2012Q1

REPORT INFORMATION
  Report Type: 
  Country: None (occurrence: None)
  Receive Date: 20120102
  Receipt Date: 20080216
  Transmission Date: 20120608
  Serious: Yes (Other)
  Sender: FDA-Public Use
  Company Number: JP-SANTEN INC.-INC-11-000217

PATIENT
  Sex: Male

DRUGS (2)
  1. LEVOFLOXACIN [Suspect]
     Dosage: 8 GTT /DAY
     Route: 047
  2. FLUOROMETHOLONE [Concomitant]
     Route: 047
     Dates: start: 20080212, end: 20080212

REACTIONS (3)
  - SHOCK [None]
  - CONJUNCTIVAL OEDEMA [None]
  - PALPITATIONS [None]
